FAERS Safety Report 16019293 (Version 1)
Quarter: 2019Q1

REPORT INFORMATION
  Report Type: Spontaneous
  Country: US (occurrence: US)
  Receive Date: 20190228
  Receipt Date: 20190228
  Transmission Date: 20190418
  Serious: Yes (Death)
  Sender: FDA-Public Use
  Company Number: US-TEVA-2019-US-1017579

PATIENT

DRUGS (4)
  1. ETIZOLAM [Suspect]
     Active Substance: ETIZOLAM
     Route: 065
  2. NORDIAZEPAM [Suspect]
     Active Substance: NORDAZEPAM
     Route: 065
  3. MIRTAZAPINE. [Suspect]
     Active Substance: MIRTAZAPINE
     Route: 065
  4. KRATOM [Suspect]
     Active Substance: HERBALS\MITRAGYNINE
     Route: 065

REACTIONS (1)
  - Drug screen positive [Fatal]
